FAERS Safety Report 4788847-3 (Version None)
Quarter: 2005Q4

REPORT INFORMATION
  Report Type: 
  Country: None (occurrence: None)
  Receive Date: 20051005
  Receipt Date: 20050826
  Transmission Date: 20060501
  Serious: Yes (Hospitalization)
  Sender: FDA-Public Use
  Company Number: GB-BRISTOL-MYERS SQUIBB COMPANY-13091673

PATIENT
  Sex: Male

DRUGS (4)
  1. CETUXIMAB [Suspect]
     Indication: COLORECTAL CANCER METASTATIC
     Dosage: INITIAL TX DATE: 04-JUL-05. STUDY TX DELAYED/OMITTED
     Route: 042
     Dates: start: 20050818, end: 20050818
  2. IRINOTECAN HCL [Suspect]
     Indication: COLORECTAL CANCER METASTATIC
     Dosage: INITIAL TX DATE: 04-JUL-05. DOSE REDUCED
     Route: 042
     Dates: start: 20050818, end: 20050818
  3. WARFARIN SODIUM [Concomitant]
     Dates: start: 20050223
  4. LOPERAMIDE [Concomitant]

REACTIONS (4)
  - BLOOD BILIRUBIN INCREASED [None]
  - DIARRHOEA [None]
  - NEUTROPENIA [None]
  - RASH [None]
